FAERS Safety Report 8891320 (Version 1)
Quarter: 2012Q4

REPORT INFORMATION
  Report Type: Spontaneous
  Country: US (occurrence: None)
  Receive Date: 20121105
  Receipt Date: 20121105
  Transmission Date: 20130627
  Serious: Yes (Other)
  Sender: FDA-Public Use
  Company Number: None

PATIENT
  Sex: Female
  Weight: 68.95 kg

DRUGS (2)
  1. CITALOPRAM HBR [Suspect]
     Indication: ANXIETY DEPRESSION
     Dates: start: 20120925, end: 20120927
  2. CITALOPRAM HBR [Suspect]
     Indication: ANXIETY DEPRESSION

REACTIONS (7)
  - Somnolence [None]
  - Diarrhoea [None]
  - Nausea [None]
  - Vomiting [None]
  - Feeling jittery [None]
  - Dry mouth [None]
  - Abdominal pain upper [None]
